FAERS Safety Report 5814548-6 (Version None)
Quarter: 2008Q3

REPORT INFORMATION
  Report Type: 
  Country: None (occurrence: None)
  Receive Date: 20080718
  Receipt Date: 20070810
  Transmission Date: 20090109
  Serious: No
  Sender: FDA-Public Use
  Company Number: US-KINGPHARMUSA00001-K200701016

PATIENT

DRUGS (2)
  1. LEVOXYL [Suspect]
     Indication: BASEDOW'S DISEASE
     Dosage: 100 MCG, UNK
     Route: 048
     Dates: start: 20070101
  2. DIAZIDE   /00413701/ [Concomitant]
     Dosage: 1 TABLET, QD
     Route: 048

REACTIONS (7)
  - DECREASED ACTIVITY [None]
  - DEPRESSED MOOD [None]
  - FATIGUE [None]
  - FEELING ABNORMAL [None]
  - HEADACHE [None]
  - INSOMNIA [None]
  - WEIGHT INCREASED [None]
